FAERS Safety Report 7294675-X (Version None)
Quarter: 2011Q1

REPORT INFORMATION
  Report Type: 
  Country: None (occurrence: None)
  Receive Date: 20110216
  Receipt Date: 20110107
  Transmission Date: 20110831
  Serious: Yes (Death, Other)
  Sender: FDA-Public Use
  Company Number: US-BAYER-200920296NA

PATIENT
  Sex: Male
  Weight: 94.8 kg

DRUGS (68)
  1. MAGNEVIST [Suspect]
     Route: 042
     Dates: start: 20060207, end: 20060207
  2. OPTIMARK [Suspect]
     Indication: NUCLEAR MAGNETIC RESONANCE IMAGING
  3. XYZAL [Concomitant]
  4. TIAZAC [Concomitant]
  5. IRON [IRON] [Concomitant]
  6. CALCIUM [CALCIUM] [Concomitant]
  7. REMERON [Concomitant]
  8. VICODIN [Concomitant]
  9. MAGNEVIST [Suspect]
     Indication: NUCLEAR MAGNETIC RESONANCE IMAGING
     Route: 042
     Dates: start: 20040921, end: 20040921
  10. PROHANCE [Suspect]
     Indication: NUCLEAR MAGNETIC RESONANCE IMAGING
  11. RENAGEL [Concomitant]
  12. LEXAPRO [Concomitant]
  13. DANAZOL [Concomitant]
  14. VANCOMYCIN [Concomitant]
     Route: 042
  15. DANOCRINE [Concomitant]
  16. ZOLOFT [Concomitant]
  17. FOLIC ACID [Concomitant]
  18. TEQUIN [Concomitant]
  19. TOPROL-XL [Concomitant]
  20. WELLBUTRIN [Concomitant]
  21. REQUIP [Concomitant]
  22. EPOETIN ALFA [Concomitant]
  23. PRAZOSIN HCL [Concomitant]
  24. DIOVAN [Concomitant]
  25. PANCRELIPASE [Concomitant]
  26. DILAUDID [Concomitant]
  27. SENOKOT [Concomitant]
  28. MAGNEVIST [Suspect]
  29. NEPHROCAPS [Concomitant]
  30. CLARITIN [Concomitant]
  31. LOVENOX [Concomitant]
  32. MAGNEVIST [Suspect]
     Dates: start: 20040801, end: 20040801
  33. OMNISCAN [Suspect]
     Indication: NUCLEAR MAGNETIC RESONANCE IMAGING
  34. COREG [Concomitant]
  35. PANCREASE [Concomitant]
  36. ALBUTEROL [Concomitant]
  37. NOVOLOG [Concomitant]
  38. HEPARIN [Concomitant]
     Route: 058
  39. EFFEXOR [Concomitant]
  40. INSULIN [INSULIN] [Concomitant]
  41. VANCOMYCIN [Concomitant]
  42. ACTIGALL [Concomitant]
  43. DOSS [ALFACALCIDOL] [Concomitant]
  44. MAGNEVIST [Suspect]
     Indication: NUCLEAR MAGNETIC RESONANCE IMAGING BRAIN
     Route: 042
     Dates: start: 20030312, end: 20030312
  45. MAGNEVIST [Suspect]
     Route: 042
     Dates: start: 20070822, end: 20070822
  46. COUMADIN [Concomitant]
  47. SEVELAMER [Concomitant]
  48. ALLOPURINOL [Concomitant]
  49. COMPAZINE [Concomitant]
  50. GLYCINE 1.5% [Concomitant]
  51. DURAGESIC-50 [Concomitant]
  52. CIPROFLOXACIN [Concomitant]
  53. REQUIP [Concomitant]
  54. MULTIHANCE [Suspect]
     Indication: NUCLEAR MAGNETIC RESONANCE IMAGING
  55. PRILOSEC [Concomitant]
  56. PREVACID [Concomitant]
  57. PREDNISONE [Concomitant]
  58. RISPERDAL [Concomitant]
  59. OXYCODONE [Concomitant]
  60. CALCIUM CARBONATE [Concomitant]
  61. MAGNEVIST [Suspect]
     Dosage: 15 ML, ONCE
     Dates: start: 20070901, end: 20070901
  62. AVELOX [Concomitant]
  63. AMARYL [Concomitant]
  64. ASPIRIN [Concomitant]
  65. MAXAIR MDI [Concomitant]
  66. EPOGEN [Concomitant]
  67. KEPPRA [Concomitant]
  68. CEFTAZIDIME [Concomitant]

REACTIONS (27)
  - GENERAL PHYSICAL HEALTH DETERIORATION [None]
  - DEFORMITY [None]
  - PAIN IN EXTREMITY [None]
  - SKIN HYPERPIGMENTATION [None]
  - GAIT DISTURBANCE [None]
  - FIBROSIS [None]
  - MOBILITY DECREASED [None]
  - SKIN INDURATION [None]
  - PAIN OF SKIN [None]
  - SKIN OEDEMA [None]
  - MUSCULOSKELETAL STIFFNESS [None]
  - JOINT CONTRACTURE [None]
  - OEDEMA [None]
  - HYPOAESTHESIA [None]
  - PARAESTHESIA [None]
  - NEPHROGENIC SYSTEMIC FIBROSIS [None]
  - SCAR [None]
  - ARTHRALGIA [None]
  - JOINT RANGE OF MOTION DECREASED [None]
  - PAIN [None]
  - OEDEMA PERIPHERAL [None]
  - SKIN EXFOLIATION [None]
  - SKIN HYPERTROPHY [None]
  - ERYTHEMA [None]
  - SKIN TIGHTNESS [None]
  - HYPERKERATOSIS [None]
  - SKIN DISORDER [None]
